FAERS Safety Report 10022875 (Version 3)
Quarter: 2015Q2

REPORT INFORMATION
  Report Type: Spontaneous
  Country: US (occurrence: US)
  Receive Date: 20140319
  Receipt Date: 20150414
  Transmission Date: 20150821
  Serious: Yes (Other)
  Sender: FDA-Public Use
  Company Number: US-PFIZER INC-2014079573

PATIENT
  Age: 58 Year
  Sex: Male
  Weight: 113 kg

DRUGS (1)
  1. NEURONTIN [Suspect]
     Active Substance: GABAPENTIN
     Indication: SPINAL DISORDER
     Dosage: UNK

REACTIONS (4)
  - Abasia [Unknown]
  - Drug ineffective [Unknown]
  - Multiple sclerosis [Unknown]
  - Disease progression [Unknown]
